FAERS Safety Report 17207382 (Version 1)
Quarter: 2019Q4

REPORT INFORMATION
  Report Type: Spontaneous
  Country: US (occurrence: US)
  Receive Date: 20191205
  Receipt Date: 20191205
  Transmission Date: 20200122
  Serious: No
  Sender: FDA-Public Use
  Company Number: None

PATIENT
  Sex: Female

DRUGS (1)
  1. HUMIRA [Suspect]
     Active Substance: ADALIMUMAB
     Indication: PSORIASIS
     Dosage: ?          OTHER DOSE:80MGD1,40MGD8;OTHER FREQUENCY:DAY 1 THEN DAY 8;?
     Route: 058
     Dates: start: 20191127

REACTIONS (2)
  - Wrong technique in device usage process [None]
  - Product dose omission [None]
